FAERS Safety Report 21395089 (Version 4)
Quarter: 2022Q4

REPORT INFORMATION
  Report Type: Report from Study
  Country: DE (occurrence: DE)
  Receive Date: 20220930
  Receipt Date: 20221202
  Transmission Date: 20230113
  Serious: Yes (Other)
  Sender: FDA-Public Use
  Company Number: DE-KYOWAKIRIN-2022BKK015157

PATIENT

DRUGS (3)
  1. BUROSUMAB [Suspect]
     Active Substance: BUROSUMAB
     Indication: Hereditary hypophosphataemic rickets
     Dosage: 20 MG
     Route: 058
     Dates: start: 20190107, end: 20190107
  2. BUROSUMAB [Suspect]
     Active Substance: BUROSUMAB
     Dosage: 90 MG
     Route: 058
     Dates: start: 20220912
  3. BUROSUMAB [Suspect]
     Active Substance: BUROSUMAB
     Dosage: 90 MG
     Route: 058
     Dates: start: 20221027

REACTIONS (2)
  - Cervical vertebral fracture [Recovered/Resolved]
  - Face injury [Recovered/Resolved]

NARRATIVE: CASE EVENT DATE: 20220913
